FAERS Safety Report 10429757 (Version 2)
Quarter: 2014Q3

REPORT INFORMATION
  Report Type: Not Available
  Country: US (occurrence: US)
  Receive Date: 20140904
  Receipt Date: 20140904
  Transmission Date: 20150326
  Serious: No
  Sender: FDA-Public Use
  Company Number: US-LUPIN PHARMACEUTICALS INC.-E2B_00001640

PATIENT
  Age: 82 Year
  Sex: Female
  Weight: 68.1 kg

DRUGS (3)
  1. PLAVIX [Concomitant]
     Active Substance: CLOPIDOGREL BISULFATE
     Indication: ANTICOAGULANT THERAPY
     Route: 065
  2. METOPROLOL [Concomitant]
     Active Substance: METOPROLOL
     Indication: BLOOD PRESSURE
     Route: 065
  3. AMLODIPINE BESYLATE TABLETS 5MG [Suspect]
     Active Substance: AMLODIPINE BESYLATE
     Indication: BLOOD PRESSURE
     Route: 048

REACTIONS (2)
  - Product solubility abnormal [Not Recovered/Not Resolved]
  - Foreign body [Not Recovered/Not Resolved]

NARRATIVE: CASE EVENT DATE: 20140117
